FAERS Safety Report 7046885-4 (Version None)
Quarter: 2010Q4

REPORT INFORMATION
  Report Type: 
  Country: None (occurrence: None)
  Receive Date: 20101015
  Receipt Date: 20101004
  Transmission Date: 20110411
  Serious: Yes (Hospitalization, Other)
  Sender: FDA-Public Use
  Company Number: PHFR2010GB04530

PATIENT
  Age: 34 Week
  Sex: Female

DRUGS (4)
  1. CARBAMAZEPINE [Suspect]
     Indication: TRIGEMINAL NEURALGIA
     Dosage: 100MG/UNK
     Route: 048
     Dates: start: 20100630
  2. DOXYCYCLINE [Concomitant]
     Indication: SINUSITIS
     Dosage: 100 MG, QD
     Route: 048
     Dates: start: 20100604
  3. ERYTHROMYCIN [Concomitant]
     Dosage: 250 MG, QID
     Route: 048
     Dates: start: 20100614
  4. FUCIDIN                                 /SCH/ [Concomitant]
     Dosage: UNK
     Route: 061
     Dates: start: 20100628

REACTIONS (5)
  - CHEST PAIN [None]
  - LIVER FUNCTION TEST ABNORMAL [None]
  - MALAISE [None]
  - OROPHARYNGEAL PAIN [None]
  - PYREXIA [None]
